FAERS Safety Report 9320220 (Version 3)
Quarter: 2013Q4

REPORT INFORMATION
  Report Type: Spontaneous
  Country: JP (occurrence: JP)
  Receive Date: 20130530
  Receipt Date: 20131007
  Transmission Date: 20140711
  Serious: Yes (Hospitalization)
  Sender: FDA-Public Use
  Company Number: JP-B.I. PHARMACEUTICALS,INC./RIDGEFIELD-2013-BI-13876NB

PATIENT
  Age: 80 Year
  Sex: Female
  Weight: 55.9 kg

DRUGS (14)
  1. TRAZENTA [Suspect]
     Indication: TYPE 2 DIABETES MELLITUS
     Dosage: 5 MG
     Route: 048
     Dates: start: 20130428, end: 20130515
  2. BAYASPIRIN [Concomitant]
     Indication: ANGINA PECTORIS
     Dosage: 100 MG
     Route: 048
     Dates: start: 20121113
  3. PLAVIX [Concomitant]
     Indication: ANGINA PECTORIS
     Dosage: 75 MG
     Route: 048
     Dates: start: 20130116
  4. TAKEPRON [Concomitant]
     Indication: GASTROOESOPHAGEAL REFLUX DISEASE
     Dosage: 30 MG
     Route: 048
  5. ROCALTROL [Concomitant]
     Indication: HYPERPARATHYROIDISM SECONDARY
     Dosage: 0.25 MCG
     Route: 048
     Dates: start: 201205
  6. PREDONINE [Concomitant]
     Indication: POLYMYALGIA RHEUMATICA
     Dosage: 2.5 MG
     Route: 048
     Dates: start: 201203
  7. ADALAT [Concomitant]
     Indication: HYPERTENSION
     Dosage: 10 MG
     Route: 048
     Dates: start: 201205
  8. LYRICA [Concomitant]
     Indication: NEUROPATHY PERIPHERAL
     Dosage: 50 MG
     Route: 048
     Dates: start: 201205
  9. IRBETAN [Concomitant]
     Indication: HYPERTENSION
     Dosage: 100 MG
     Route: 048
     Dates: start: 20130302
  10. CALBLOCK [Concomitant]
     Indication: HYPERTENSION
     Dosage: 16 MG
     Route: 048
     Dates: start: 20130302
  11. LOXONIN [Concomitant]
     Indication: HEADACHE
     Dosage: 60 MG
     Route: 048
  12. NOVORAPID 50 MIX [Concomitant]
     Indication: TYPE 2 DIABETES MELLITUS
     Dosage: 20 U
     Route: 058
     Dates: start: 20130204
  13. INSULIN [Concomitant]
     Route: 065
  14. AMOBAN [Concomitant]
     Indication: INSOMNIA
     Route: 048

REACTIONS (1)
  - Cholecystitis acute [Not Recovered/Not Resolved]
